FAERS Safety Report 25955362 (Version 1)
Quarter: 2025Q4

REPORT INFORMATION
  Report Type: Report from Study
  Country: AU (occurrence: AU)
  Receive Date: 20251024
  Receipt Date: 20251024
  Transmission Date: 20260118
  Serious: Yes (Death, Hospitalization)
  Sender: IPSEN BIOPHARMACEUTICALS, INC.
  Company Number: AU-SERVIER-S24007004

PATIENT
  Age: 65 Year
  Sex: Male

DRUGS (3)
  1. IRINOTECAN [Suspect]
     Active Substance: IRINOTECAN
     Indication: Colorectal cancer metastatic
     Dosage: 340 MG, QD
     Route: 042
     Dates: start: 20210927, end: 20220325
  2. PANITUMUMAB [Suspect]
     Active Substance: PANITUMUMAB
     Indication: Colorectal cancer metastatic
     Dosage: 462 MG, QD, ON DAY 1 OF EVERY 14-DAY CYCLE
     Dates: start: 20210927, end: 20220325
  3. LONSURF [Suspect]
     Active Substance: TIPIRACIL HYDROCHLORIDE\TRIFLURIDINE
     Indication: Colorectal cancer metastatic
     Dosage: 90 MG/M2, BID, ON DAYS 1-5 OF EVERY 14 DAY CYCLE.
     Route: 048
     Dates: start: 20210927, end: 20220329

REACTIONS (3)
  - Neutropenic sepsis [Fatal]
  - Multiple organ dysfunction syndrome [Fatal]
  - Cerebrovascular accident [Fatal]

NARRATIVE: CASE EVENT DATE: 20220401
